FAERS Safety Report 4956753-7 (Version None)
Quarter: 2006Q1

REPORT INFORMATION
  Report Type: 
  Country: None (occurrence: None)
  Receive Date: 20060329
  Receipt Date: 20060208
  Transmission Date: 20060701
  Serious: Yes (Other)
  Sender: FDA-Public Use
  Company Number: JP-ROCHE-436313

PATIENT
  Age: 85 Year
  Sex: Male
  Weight: 50 kg

DRUGS (9)
  1. TAMIFLU [Suspect]
     Route: 048
     Dates: start: 20060203, end: 20060205
  2. ASPIRIN [Concomitant]
     Route: 048
     Dates: start: 20050415
  3. CEROCRAL [Concomitant]
     Route: 048
     Dates: start: 20050415
  4. HARNAL [Concomitant]
     Route: 048
     Dates: start: 20050415
  5. NOVOLIN R [Concomitant]
     Dosage: 10 UNITS IN THE MORNING AND 6 UNITS IN THE EVENING
     Route: 058
     Dates: start: 20050415
  6. PL [Concomitant]
     Route: 048
     Dates: start: 20060201, end: 20060205
  7. MEDICON [Concomitant]
     Route: 048
     Dates: start: 20060201, end: 20060205
  8. SPARA [Concomitant]
     Dosage: TAKEN FOR FEVER AS NEEDED
     Route: 048
     Dates: start: 20060201, end: 20060205
  9. VOLTAREN [Concomitant]
     Route: 054
     Dates: start: 20060203, end: 20060203

REACTIONS (3)
  - ABNORMAL BEHAVIOUR [None]
  - DELIRIUM [None]
  - HALLUCINATION, AUDITORY [None]
